FAERS Safety Report 13162356 (Version 4)
Quarter: 2017Q2

REPORT INFORMATION
  Report Type: Report from Study
  Country: CA (occurrence: CA)
  Receive Date: 20170130
  Receipt Date: 20170407
  Transmission Date: 20170830
  Serious: Yes (Other)
  Sender: FDA-Public Use
  Company Number: PHHY2017CA012493

PATIENT
  Sex: Female

DRUGS (2)
  1. EXJADE [Suspect]
     Active Substance: DEFERASIROX
     Indication: MYELOFIBROSIS
     Dosage: 1500 MG, QD
     Route: 048
     Dates: start: 20170126
  2. DEFEROXAMINE [Suspect]
     Active Substance: DEFEROXAMINE\DEFEROXAMINE MESYLATE
     Indication: IRON OVERLOAD
     Route: 065

REACTIONS (6)
  - Epistaxis [Unknown]
  - Myelofibrosis [Unknown]
  - Diarrhoea [Unknown]
  - Eye disorder [Unknown]
  - Constipation [Unknown]
  - Drug intolerance [Unknown]
